FAERS Safety Report 11256056 (Version 1)
Quarter: 2015Q3

REPORT INFORMATION
  Report Type: Spontaneous
  Country: JP (occurrence: JP)
  Receive Date: 20150709
  Receipt Date: 20150709
  Transmission Date: 20151125
  Serious: Yes (Hospitalization, Other)
  Sender: FDA-Public Use
  Company Number: JP-009507513-1507JPN002356

PATIENT
  Age: 54 Year
  Sex: Male

DRUGS (21)
  1. CYCLOPHOSPHAMIDE. [Suspect]
     Active Substance: CYCLOPHOSPHAMIDE
     Dosage: CYCLICAL (INTENSIFIED)
     Route: 065
  2. METHOTREXATE [Concomitant]
     Active Substance: METHOTREXATE
     Indication: PROPHYLAXIS AGAINST GRAFT VERSUS HOST DISEASE
     Route: 065
  3. MELPHALAN [Suspect]
     Active Substance: MELPHALAN
     Dosage: 80 MG/M2, CYCLICAL (X1DAY)
     Route: 065
  4. PREDNISOLONE. [Suspect]
     Active Substance: PREDNISOLONE
     Indication: B-CELL LYMPHOMA
     Dosage: UNK, CYCLICAL, 8 CYCLES
     Route: 065
  5. RITUXIMAB [Suspect]
     Active Substance: RITUXIMAB
     Dosage: UNK, CYCLICAL, SALVAGE THERAPY
     Route: 065
  6. FLUDARABINE PHOSPHATE. [Suspect]
     Active Substance: FLUDARABINE PHOSPHATE
     Dosage: 25 MG, CYCLICAL (X 5 DAYS)
     Route: 065
  7. RITUXIMAB [Suspect]
     Active Substance: RITUXIMAB
     Indication: B-CELL LYMPHOMA
     Dosage: UNK, CYCLICAL, 8 CYCLES
     Route: 065
  8. DEXAMETHASONE. [Suspect]
     Active Substance: DEXAMETHASONE
     Indication: B-CELL LYMPHOMA
     Dosage: UNK, CYCLICAL
     Route: 065
  9. CYCLOPHOSPHAMIDE. [Suspect]
     Active Substance: CYCLOPHOSPHAMIDE
     Indication: B-CELL LYMPHOMA
     Dosage: CYCLICAL, 8 CYCLES
     Route: 065
  10. DEXAMETHASONE. [Suspect]
     Active Substance: DEXAMETHASONE
     Dosage: UNK, CYC (MYELOABLATIVE CHEMOTHERAPY)
     Route: 065
  11. ETOPOSIDE. [Suspect]
     Active Substance: ETOPOSIDE
     Indication: B-CELL LYMPHOMA
     Dosage: DAILY DOSE UNKNOWN
     Route: 065
  12. FLUDARABINE PHOSPHATE. [Suspect]
     Active Substance: FLUDARABINE PHOSPHATE
     Indication: B-CELL LYMPHOMA
     Dosage: UNK UNK, CYCLICAL
     Route: 065
  13. EVEROLIMUS [Suspect]
     Active Substance: EVEROLIMUS
     Indication: B-CELL LYMPHOMA
     Dosage: UNK, CYCLICAL
     Route: 065
  14. CYTARABINE. [Suspect]
     Active Substance: CYTARABINE
     Indication: B-CELL LYMPHOMA
     Dosage: UNK, CYCLICAL (HIGH DOSE)
     Route: 065
  15. IBRITUMOMAB TIUXETAN [Suspect]
     Active Substance: IBRITUMOMAB TIUXETAN
     Indication: B-CELL LYMPHOMA
     Dosage: UNK, CYCLICAL
     Route: 065
  16. DOXORUBICIN HYDROCHLORIDE. [Suspect]
     Active Substance: DOXORUBICIN HYDROCHLORIDE
     Indication: B-CELL LYMPHOMA
     Dosage: UNK, CYCLICAL, 8 CYCLES
     Route: 065
  17. VINCRISTINE SULFATE. [Suspect]
     Active Substance: VINCRISTINE SULFATE
     Indication: B-CELL LYMPHOMA
     Dosage: UNK, CYCLICAL, 8 CYCLES
     Route: 065
  18. CYCLOSPORINE. [Concomitant]
     Active Substance: CYCLOSPORINE
     Indication: PROPHYLAXIS AGAINST GRAFT VERSUS HOST DISEASE
     Route: 065
  19. BENDAMUSTINE [Suspect]
     Active Substance: BENDAMUSTINE
     Indication: B-CELL LYMPHOMA
     Dosage: UNK, CYCLICAL (SALVAGE THERAPY)
     Route: 065
  20. MELPHALAN [Suspect]
     Active Substance: MELPHALAN
     Indication: B-CELL LYMPHOMA
     Dosage: UNK
     Route: 065
  21. CYCLOPHOSPHAMIDE. [Suspect]
     Active Substance: CYCLOPHOSPHAMIDE
     Dosage: UNK, CYCLICAL (MYELOABLATIVE CHEMOTHERAPY)
     Route: 065

REACTIONS (1)
  - Myelodysplastic syndrome [Recovered/Resolved]

NARRATIVE: CASE EVENT DATE: 2012
